FAERS Safety Report 4804403-2 (Version None)
Quarter: 2005Q4

REPORT INFORMATION
  Report Type: 
  Country: None (occurrence: None)
  Receive Date: 20051020
  Receipt Date: 20051011
  Transmission Date: 20060501
  Serious: Yes (Disabling)
  Sender: FDA-Public Use
  Company Number: BR-GLAXOSMITHKLINE-A0578340A

PATIENT
  Age: 68 Year
  Sex: Female
  Weight: 62 kg

DRUGS (1)
  1. DIGOXINA [Suspect]
     Indication: CARDIAC FAILURE
     Route: 048
     Dates: start: 20051012

REACTIONS (7)
  - CONFUSIONAL STATE [None]
  - DIZZINESS [None]
  - HYPERHIDROSIS [None]
  - ILL-DEFINED DISORDER [None]
  - PAIN [None]
  - PSYCHOMOTOR HYPERACTIVITY [None]
  - VISUAL DISTURBANCE [None]
